FAERS Safety Report 6540478-0 (Version None)
Quarter: 2010Q1

REPORT INFORMATION
  Report Type: 
  Country: None (occurrence: None)
  Receive Date: 20100113
  Receipt Date: 20091230
  Transmission Date: 20100710
  Serious: Yes (Hospitalization)
  Sender: FDA-Public Use
  Company Number: 004123

PATIENT
  Age: 16 Month
  Sex: Female

DRUGS (4)
  1. LEVETIRACETAM [Suspect]
     Indication: EPILEPSY
     Dosage: (60 MG/KG), (30 MG/KG)
  2. CLOBAZAM (CLOBAZAM) [Suspect]
     Indication: EPILEPSY
     Dosage: (400 PG/KG)
  3. CLONAZEPAM [Suspect]
     Dosage: (100UG/KG)
  4. VIGABATRIN (VIGABATRIN) [Suspect]
     Dosage: (120 MG/KG)

REACTIONS (10)
  - ASPIRATION [None]
  - BLISTER [None]
  - CEREBRAL ATROPHY [None]
  - CHOKING [None]
  - CONDITION AGGRAVATED [None]
  - CONVULSION [None]
  - NEURODEVELOPMENTAL DISORDER [None]
  - RESPIRATORY SYNCYTIAL VIRUS BRONCHIOLITIS [None]
  - SOMNOLENCE [None]
  - SWELLING FACE [None]
